FAERS Safety Report 4518976-0 (Version None)
Quarter: 2004Q4

REPORT INFORMATION
  Report Type: 
  Country: None (occurrence: None)
  Receive Date: 20041203
  Receipt Date: 20041203
  Transmission Date: 20050328
  Serious: Yes (Hospitalization)
  Sender: FDA-Public Use
  Company Number: None

PATIENT
  Age: 56 Year
  Sex: Male
  Weight: 85.2762 kg

DRUGS (13)
  1. MEGACE [Suspect]
     Indication: DECREASED APPETITE
     Dosage: 800MG  DAILY ORAL
     Route: 048
     Dates: start: 20040921, end: 20041021
  2. ACETAMINOPHEN [Concomitant]
  3. ALUMINUM HYDROXIDE AND MAGNESIUM TRISILICATE [Concomitant]
  4. EFAVIRENZ [Concomitant]
  5. ETHAMBUTOL [Concomitant]
  6. ISONIAZID [Concomitant]
  7. COMBIVIR [Concomitant]
  8. MIRTAZAPINE [Concomitant]
  9. OMEPRAZOLE [Concomitant]
  10. ONDANSETRON [Concomitant]
  11. PENICILLIN G POTASSIUM INJ [Concomitant]
  12. PYRAZINAMIDE [Concomitant]
  13. RIFAMPICIN [Concomitant]

REACTIONS (3)
  - ADRENAL SUPPRESSION [None]
  - BLOOD LUTEINISING HORMONE DECREASED [None]
  - BLOOD TESTOSTERONE DECREASED [None]
